FAERS Safety Report 24189131 (Version 2)
Quarter: 2025Q1

REPORT INFORMATION
  Report Type: Spontaneous
  Country: CA (occurrence: CA)
  Receive Date: 20240808
  Receipt Date: 20250204
  Transmission Date: 20250409
  Serious: Yes (Other)
  Sender: AUROBINDO
  Company Number: CA-AUROBINDO-AUR-APL-2024-039448

PATIENT
  Age: 58 Year
  Sex: Female
  Weight: 198 kg

DRUGS (4)
  1. CEFIXIME [Suspect]
     Active Substance: CEFIXIME
     Indication: Kidney infection
     Route: 048
  2. CEFIXIME [Suspect]
     Active Substance: CEFIXIME
     Indication: Haematological infection
  3. STELARA [Suspect]
     Active Substance: USTEKINUMAB
     Indication: Crohn^s disease
     Route: 058
  4. WARFARIN [Concomitant]
     Active Substance: WARFARIN
     Indication: Product used for unknown indication
     Route: 065

REACTIONS (5)
  - Crohn^s disease [Recovered/Resolved]
  - Cystitis [Recovered/Resolved]
  - Haematological infection [Recovered/Resolved]
  - Nephrolithiasis [Recovered/Resolved]
  - Kidney infection [Recovered/Resolved]
